FAERS Safety Report 8410779-X (Version None)
Quarter: 2012Q2

REPORT INFORMATION
  Report Type: 
  Country: None (occurrence: None)
  Receive Date: 20120605
  Receipt Date: 20120529
  Transmission Date: 20120825
  Serious: Yes (Hospitalization)
  Sender: FDA-Public Use
  Company Number: US-ASTELLAS-2012US004007

PATIENT
  Sex: Male

DRUGS (4)
  1. AGGRENOX [Concomitant]
     Indication: PRODUCT USED FOR UNKNOWN INDICATION
     Dosage: UNK
     Route: 065
  2. VESICARE [Suspect]
     Indication: HYPERTONIC BLADDER
     Dosage: 5 MG, UID/QD
     Route: 048
     Dates: start: 20110101
  3. ALLOPURINOL [Concomitant]
     Indication: GOUT
     Dosage: UNK
     Route: 065
  4. VESICARE [Suspect]
     Indication: MICTURITION URGENCY

REACTIONS (1)
  - EPISTAXIS [None]
